FAERS Safety Report 9227453 (Version 1)
Quarter: 2013Q2

REPORT INFORMATION
  Report Type: Spontaneous
  Country: US (occurrence: None)
  Receive Date: 20130411
  Receipt Date: 20130411
  Transmission Date: 20140414
  Serious: Yes (Hospitalization)
  Sender: FDA-Public Use
  Company Number: None

PATIENT
  Age: 90 Year
  Sex: Male
  Weight: 84.1 kg

DRUGS (10)
  1. ASA [Suspect]
     Dosage: CHRONIC USE  81MG DAILY PO
     Route: 048
  2. METFORMIN [Concomitant]
  3. SACCHAROMYCES [Concomitant]
  4. BOULARDI LYO [Concomitant]
  5. LEVOFLOXACIN [Concomitant]
  6. TAMSULOSIN [Concomitant]
  7. MVI [Concomitant]
  8. POLYETHYLENE GLYCOL [Concomitant]
  9. FINASTERIDE [Concomitant]
  10. UNSPECIFIED INGREDIENTS [Suspect]

REACTIONS (2)
  - Upper airway obstruction [None]
  - Angioedema [None]
